FAERS Safety Report 6892412-1 (Version None)
Quarter: 2010Q3

REPORT INFORMATION
  Report Type: 
  Country: None (occurrence: None)
  Receive Date: 20100731
  Receipt Date: 20080513
  Transmission Date: 20110219
  Serious: No
  Sender: FDA-Public Use
  Company Number: US-PFIZER INC-2008041910

PATIENT
  Sex: Female
  Weight: 68.181 kg

DRUGS (1)
  1. FLAGYL [Suspect]
     Indication: PARASITIC GASTROENTERITIS
     Dates: start: 20080401

REACTIONS (1)
  - DYSGEUSIA [None]
